FAERS Safety Report 24592602 (Version 1)
Quarter: 2024Q4

REPORT INFORMATION
  Report Type: Spontaneous
  Country: US (occurrence: US)
  Receive Date: 20241108
  Receipt Date: 20241108
  Transmission Date: 20250114
  Serious: Yes (Hospitalization)
  Sender: EMD SERONO INC
  Company Number: US-Merck Healthcare KGaA-2024058228

PATIENT
  Sex: Male

DRUGS (2)
  1. MAVENCLAD [Suspect]
     Active Substance: CLADRIBINE
     Indication: Multiple sclerosis
     Dosage: FIRST YEAR SECOND MONTH: TWO TABLETS ON DAY 1 AND 2 AND ONE TABLET DAY 3 TO 5
     Dates: start: 20220526, end: 20220530
  2. MAVENCLAD [Suspect]
     Active Substance: CLADRIBINE
     Dosage: FIRST YEAR FIRST MONTH

REACTIONS (1)
  - Cellulitis [Unknown]
